FAERS Safety Report 22603207 (Version 1)
Quarter: 2023Q2

REPORT INFORMATION
  Report Type: Spontaneous
  Country: US (occurrence: US)
  Receive Date: 20230615
  Receipt Date: 20230615
  Transmission Date: 20230721
  Serious: No
  Sender: FDA-Public Use
  Company Number: US-ABBVIE-5290085

PATIENT
  Age: 28 Year
  Sex: Female

DRUGS (2)
  1. LILETTA [Suspect]
     Active Substance: LEVONORGESTREL
     Indication: Product used for unknown indication
     Dosage: TIME INTERVAL: AS NECESSARY
     Route: 015
     Dates: start: 20230608, end: 20230608
  2. LILETTA [Suspect]
     Active Substance: LEVONORGESTREL

REACTIONS (1)
  - Procedural haemorrhage [Unknown]

NARRATIVE: CASE EVENT DATE: 20230608
